FAERS Safety Report 21747046 (Version 2)
Quarter: 2022Q4

REPORT INFORMATION
  Report Type: Report from Study
  Country: CA (occurrence: CA)
  Receive Date: 20221219
  Receipt Date: 20221226
  Transmission Date: 20230113
  Serious: Yes (Other)
  Sender: FDA-Public Use
  Company Number: CA-SAMSUNG BIOEPIS-SB-2022-31993

PATIENT
  Age: 31 Year
  Sex: Female

DRUGS (6)
  1. HADLIMA [Suspect]
     Active Substance: ADALIMUMAB-BWWD
     Indication: Colitis ulcerative
     Dosage: 40 MG/0.8ML;
     Route: 065
     Dates: start: 20221126
  2. EPICORT [Concomitant]
     Indication: Product used for unknown indication
     Dosage: UNKNOWN
     Route: 065
  3. IRON [Concomitant]
     Active Substance: IRON
     Indication: Product used for unknown indication
     Dosage: UNKNOWN
     Route: 065
  4. NIACIN [Concomitant]
     Active Substance: NIACIN
     Indication: Product used for unknown indication
     Dosage: UNKNOWN
     Route: 065
  5. PREDNISONE [Concomitant]
     Active Substance: PREDNISONE
     Indication: Product used for unknown indication
     Dosage: UNKNOWN
     Route: 065
  6. HYDROCORTISONE [Concomitant]
     Active Substance: HYDROCORTISONE
     Indication: Product used for unknown indication
     Dosage: UNKNOWN
     Route: 065

REACTIONS (12)
  - COVID-19 [Recovering/Resolving]
  - Dizziness [Unknown]
  - Abdominal pain upper [Unknown]
  - Loss of consciousness [Unknown]
  - Migraine [Unknown]
  - Headache [Unknown]
  - Somnolence [Unknown]
  - Muscle spasms [Unknown]
  - Neck pain [Unknown]
  - Stress [Unknown]
  - Dysstasia [Unknown]
  - Blood pressure increased [Unknown]

NARRATIVE: CASE EVENT DATE: 20221209
